FAERS Safety Report 18738949 (Version 1)
Quarter: 2021Q1

REPORT INFORMATION
  Report Type: Other
  Country: US (occurrence: US)
  Receive Date: 20210114
  Receipt Date: 20210114
  Transmission Date: 20210419
  Serious: Yes (Hospitalization, Other)
  Sender: FDA-Public Use
  Company Number: US-ROCHE-2505875

PATIENT
  Age: 48 Year
  Sex: Female
  Weight: 49.94 kg

DRUGS (10)
  1. OCREVUS [Suspect]
     Active Substance: OCRELIZUMAB
     Indication: RELAPSING-REMITTING MULTIPLE SCLEROSIS
     Dosage: DESCRIBED AS HALF DOSE
     Route: 042
     Dates: start: 20190610, end: 20190625
  2. WELLBUTRIN [Concomitant]
     Active Substance: BUPROPION HYDROCHLORIDE
     Indication: DEPRESSION
     Dosage: STARTED BEFORE OCREVUS
     Route: 048
  3. KLONOPIN [Suspect]
     Active Substance: CLONAZEPAM
     Dosage: CAN TAKE UP TO 2 TIMES A DAY
     Route: 048
     Dates: start: 2003
  4. CYMBALTA [Concomitant]
     Active Substance: DULOXETINE HYDROCHLORIDE
     Indication: DEPRESSION
     Dosage: STARTED BEFORE OCREVUS
     Route: 048
  5. OCREVUS [Suspect]
     Active Substance: OCRELIZUMAB
     Route: 042
     Dates: start: 201906, end: 20190625
  6. KLONOPIN [Suspect]
     Active Substance: CLONAZEPAM
     Indication: RESTLESS LEGS SYNDROME
     Dosage: PRN ? STARTED AFTER OCREVUS
     Route: 048
  7. SYNTHROID [Concomitant]
     Active Substance: LEVOTHYROXINE SODIUM
     Indication: HYPOTHYROIDISM
     Dosage: MONDAY THROUGH FRIDAY
     Route: 048
  8. OCREVUS [Suspect]
     Active Substance: OCRELIZUMAB
     Dosage: DESCRIBED AS FULL DOSE
     Route: 042
     Dates: start: 20191210
  9. SYNTHROID [Concomitant]
     Active Substance: LEVOTHYROXINE SODIUM
     Dosage: SATURDAY AND SUNDAY
     Route: 048
  10. BIOTIN [Concomitant]
     Active Substance: BIOTIN
     Indication: ALOPECIA
     Dosage: STARTED 2 WEEKS BEFORE OCREVUS
     Route: 048
     Dates: start: 2019

REACTIONS (16)
  - Flushing [Recovered/Resolved]
  - Vitamin A decreased [Not Recovered/Not Resolved]
  - Gastrointestinal scarring [Recovered/Resolved]
  - Blood iron decreased [Not Recovered/Not Resolved]
  - Pruritus [Recovered/Resolved]
  - Weight fluctuation [Not Recovered/Not Resolved]
  - Multiple sclerosis relapse [Recovered/Resolved]
  - JC polyomavirus test positive [Unknown]
  - Intentional product use issue [Unknown]
  - Device related infection [Recovered/Resolved]
  - Weight decreased [Not Recovered/Not Resolved]
  - Decreased appetite [Not Recovered/Not Resolved]
  - Headache [Unknown]
  - Urticaria [Not Recovered/Not Resolved]
  - Off label use [Unknown]
  - Nausea [Not Recovered/Not Resolved]

NARRATIVE: CASE EVENT DATE: 201308
